FAERS Safety Report 9231966 (Version 1)
Quarter: 2013Q2

REPORT INFORMATION
  Report Type: Spontaneous
  Country: US (occurrence: US)
  Receive Date: 20130415
  Receipt Date: 20130415
  Transmission Date: 20140414
  Serious: Yes (Other)
  Sender: FDA-Public Use
  Company Number: US-ELI_LILLY_AND_COMPANY-US201211004755

PATIENT
  Age: 73 Year
  Sex: Female

DRUGS (1)
  1. FORTEO [Suspect]
     Indication: OSTEOPOROSIS
     Dosage: 20 UG, QD
     Dates: start: 20121106

REACTIONS (8)
  - Haemorrhage [Unknown]
  - Confusional state [Unknown]
  - Anxiety [Unknown]
  - Injection site pain [Unknown]
  - Arthralgia [Unknown]
  - Diarrhoea [Unknown]
  - Gait disturbance [Unknown]
  - Oedema peripheral [Unknown]
